FAERS Safety Report 6443714-4 (Version None)
Quarter: 2009Q4

REPORT INFORMATION
  Report Type: 
  Country: None (occurrence: None)
  Receive Date: 20091117
  Receipt Date: 20091105
  Transmission Date: 20100525
  Serious: Yes (Life-Threatening, Hospitalization, Other)
  Sender: FDA-Public Use
  Company Number: JP-WYE-H11940209

PATIENT
  Sex: Male
  Weight: 60 kg

DRUGS (15)
  1. ZOSYN [Suspect]
     Indication: SEPSIS
     Route: 041
     Dates: start: 20091026, end: 20091026
  2. PLAVIX [Concomitant]
     Route: 048
  3. GASMOTIN [Concomitant]
     Route: 048
  4. EPADEL [Concomitant]
     Dosage: UNKNOWN
     Route: 048
  5. MUCOSTA [Concomitant]
     Dosage: UNKNOWN
     Route: 048
  6. PREDNISOLONE [Concomitant]
     Route: 048
  7. ACTONEL [Concomitant]
     Route: 048
  8. LANSOPRAZOLE [Concomitant]
     Route: 048
  9. ASPIRIN [Concomitant]
     Route: 048
  10. TENORMIN [Concomitant]
     Route: 048
  11. RIFADIN [Concomitant]
     Route: 048
  12. ISCOTIN [Concomitant]
     Route: 048
  13. SIGMART [Concomitant]
     Route: 048
  14. STREPTOMYCIN SULFATE [Suspect]
     Indication: TUBERCULOSIS
     Route: 030
  15. STREPTOMYCIN SULFATE [Suspect]
     Indication: PLEURISY

REACTIONS (3)
  - ANAPHYLACTIC SHOCK [None]
  - CONVULSION [None]
  - RESPIRATORY FAILURE [None]
